FAERS Safety Report 11644061 (Version 1)
Quarter: 2015Q4

REPORT INFORMATION
  Report Type: Spontaneous
  Country: IT (occurrence: IT)
  Receive Date: 20151020
  Receipt Date: 20151020
  Transmission Date: 20160304
  Serious: Yes (Hospitalization)
  Sender: FDA-Public Use
  Company Number: IT-JNJFOC-20151013945

PATIENT
  Age: 71 Year
  Sex: Female

DRUGS (8)
  1. FOLIC ACID. [Concomitant]
     Active Substance: FOLIC ACID
     Route: 048
  2. PRAZENE [Concomitant]
     Active Substance: PRAZEPAM
     Route: 048
  3. XARELTO [Suspect]
     Active Substance: RIVAROXABAN
     Indication: CEREBROVASCULAR ACCIDENT PROPHYLAXIS
     Route: 048
     Dates: start: 20140920, end: 20150311
  4. PROPAFENONE. [Concomitant]
     Active Substance: PROPAFENONE
     Route: 048
  5. XARELTO [Suspect]
     Active Substance: RIVAROXABAN
     Indication: ATRIAL FIBRILLATION
     Route: 048
     Dates: start: 20140920, end: 20150311
  6. SPRYCEL [Concomitant]
     Active Substance: DASATINIB
     Route: 048
  7. TORA-DOL [Concomitant]
     Active Substance: KETOROLAC TROMETHAMINE
     Route: 048
  8. METOPROLOL [Concomitant]
     Active Substance: METOPROLOL
     Route: 048

REACTIONS (2)
  - Melaena [Unknown]
  - Nausea [Unknown]

NARRATIVE: CASE EVENT DATE: 20150311
